FAERS Safety Report 7214313-1 (Version None)
Quarter: 2011Q1

REPORT INFORMATION
  Report Type: 
  Country: None (occurrence: None)
  Receive Date: 20110107
  Receipt Date: 20101227
  Transmission Date: 20110831
  Serious: Yes (Hospitalization)
  Sender: FDA-Public Use
  Company Number: PHHY2010US88648

PATIENT
  Sex: Male

DRUGS (2)
  1. CHEMOTHERAPEUTICS,OTHER [Concomitant]
  2. GLEEVEC [Suspect]

REACTIONS (2)
  - PNEUMOTHORAX [None]
  - PULMONARY TOXICITY [None]
